FAERS Safety Report 21667239 (Version 2)
Quarter: 2022Q4

REPORT INFORMATION
  Report Type: Spontaneous
  Country: US (occurrence: US)
  Receive Date: 20221201
  Receipt Date: 20221221
  Transmission Date: 20230113
  Serious: Yes (Hospitalization, Other)
  Sender: FDA-Public Use
  Company Number: US-GLAXOSMITHKLINE-US2022AMR178497

PATIENT

DRUGS (2)
  1. FLOLAN [Suspect]
     Active Substance: EPOPROSTENOL SODIUM
     Indication: Pulmonary arterial hypertension
     Dosage: 82 NG/KG/MIN,CO, CONCENTRATION: 75,000 NG/ML, PUMP RATE: 79 ML/DAY, VIAL STRENGTH: 1.5 MG
     Dates: start: 20061215
  2. GLYCINE\MANNITOL\SODIUM CHLORIDE [Suspect]
     Active Substance: GLYCINE\MANNITOL\SODIUM CHLORIDE
     Indication: Vehicle solution use
     Dosage: UNK
     Dates: start: 20190121

REACTIONS (4)
  - Cardiac failure congestive [Unknown]
  - Dyspnoea [Unknown]
  - Flushing [Unknown]
  - Headache [Unknown]
